FAERS Safety Report 10682033 (Version 10)
Quarter: 2017Q1

REPORT INFORMATION
  Report Type: Spontaneous
  Country: US (occurrence: US)
  Receive Date: 20141230
  Receipt Date: 20170221
  Transmission Date: 20170428
  Serious: Yes (Other)
  Sender: FDA-Public Use
  Company Number: US-PFIZER INC-2014352609

PATIENT
  Age: 67 Year
  Sex: Male
  Weight: 79 kg

DRUGS (15)
  1. METAMUCIL [Concomitant]
     Active Substance: PLANTAGO SEED
     Dosage: UNK
     Dates: start: 201406
  2. PROBIOTICS [Concomitant]
     Active Substance: PROBIOTICS NOS
     Dosage: UNK
  3. SUTENT [Suspect]
     Active Substance: SUNITINIB MALATE
     Dosage: 50 MG, 2 WEEKS ON AND 1 WEEK OFF
     Dates: start: 20140813, end: 201501
  4. SYNTHROID [Concomitant]
     Active Substance: LEVOTHYROXINE SODIUM
     Indication: THYROID CANCER
     Dosage: 200 UG, 1X/DAY
     Dates: start: 1990
  5. TAMSULOSIN HCL [Concomitant]
     Active Substance: TAMSULOSIN
     Indication: DYSURIA
     Dosage: 0.4 MG, 1X/DAY
     Dates: start: 2014
  6. SUTENT [Suspect]
     Active Substance: SUNITINIB MALATE
     Indication: RENAL CANCER METASTATIC
     Dosage: 50 MG ONCE DAILY, 4 WEEKS ON AND 2 WEEKS OFF
     Dates: start: 201308
  7. BETAMETHASONE. [Concomitant]
     Active Substance: BETAMETHASONE
     Dosage: UNK , AS NEEDED
     Dates: start: 2008
  8. BAYER ASPIRIN [Concomitant]
     Active Substance: ASPIRIN
     Dosage: 81 MG, UNK
     Dates: start: 2008
  9. KETOCONAZOLE. [Concomitant]
     Active Substance: KETOCONAZOLE
     Dosage: UNK, AS NEEDED
     Dates: start: 2008
  10. SUTENT [Suspect]
     Active Substance: SUNITINIB MALATE
     Dosage: 50 MG ONCE DAILY, CYCLIC
     Dates: start: 2015
  11. FLOMAX [Concomitant]
     Active Substance: TAMSULOSIN HYDROCHLORIDE
     Dosage: 0.4 MG, UNK
     Dates: start: 2011
  12. ATIVAN [Concomitant]
     Active Substance: LORAZEPAM
     Dosage: 1 MG, UNK
     Dates: start: 201408
  13. SUTENT [Suspect]
     Active Substance: SUNITINIB MALATE
     Dosage: 50 MG, CYCLIC (DAILY, 2 WEEKS ON/1 WEEK OFF)
     Route: 048
     Dates: start: 20150211, end: 20161031
  14. NEXIUM [Concomitant]
     Active Substance: ESOMEPRAZOLE MAGNESIUM
     Dosage: 22.3 MG, UNK
     Dates: start: 201405
  15. IMODIUM [Concomitant]
     Active Substance: LOPERAMIDE HYDROCHLORIDE
     Dosage: UNK, AS NEEDED
     Dates: start: 2014

REACTIONS (26)
  - Colitis [Unknown]
  - Dysgeusia [Not Recovered/Not Resolved]
  - Stomatitis [Not Recovered/Not Resolved]
  - Dry skin [Not Recovered/Not Resolved]
  - Dizziness [Recovered/Resolved]
  - Hypotension [Unknown]
  - Rash [Not Recovered/Not Resolved]
  - Gastrointestinal disorder [Unknown]
  - Dyspepsia [Unknown]
  - Renal cancer metastatic [Unknown]
  - Vomiting [Recovered/Resolved]
  - Decreased appetite [Recovered/Resolved]
  - Oral disorder [Unknown]
  - Hair colour changes [Not Recovered/Not Resolved]
  - Pain in extremity [Not Recovered/Not Resolved]
  - Pancreatitis [Unknown]
  - Erythema [Not Recovered/Not Resolved]
  - Asthenia [Recovered/Resolved]
  - Malaise [Unknown]
  - Epistaxis [Recovering/Resolving]
  - Hyperaesthesia [Unknown]
  - Nasal discomfort [Not Recovered/Not Resolved]
  - Disease progression [Unknown]
  - Staphylococcal infection [Recovering/Resolving]
  - Myalgia [Not Recovered/Not Resolved]
  - Diarrhoea [Recovered/Resolved]

NARRATIVE: CASE EVENT DATE: 2013
